FAERS Safety Report 24188352 (Version 1)
Quarter: 2024Q3

REPORT INFORMATION
  Report Type: Spontaneous
  Country: US (occurrence: US)
  Receive Date: 20240808
  Receipt Date: 20240808
  Transmission Date: 20241017
  Serious: No
  Sender: OTSUKA
  Company Number: US-OTSUKA-2023_025174

PATIENT
  Age: 48 Year
  Sex: Female

DRUGS (1)
  1. ABILIFY [Suspect]
     Active Substance: ARIPIPRAZOLE
     Indication: Bipolar I disorder
     Dosage: UNK
     Route: 048
     Dates: start: 2012

REACTIONS (2)
  - Depression [Not Recovered/Not Resolved]
  - Loss of employment [Unknown]

NARRATIVE: CASE EVENT DATE: 20200201
